FAERS Safety Report 4799020-7 (Version None)
Quarter: 2005Q4

REPORT INFORMATION
  Report Type: 
  Country: None (occurrence: None)
  Receive Date: 20051013
  Receipt Date: 20050929
  Transmission Date: 20060501
  Serious: Yes (Death)
  Sender: FDA-Public Use
  Company Number: 2005-BP-16050RO

PATIENT
  Age: 29 Year
  Sex: Female
  Weight: 68 kg

DRUGS (4)
  1. METHADONE HCL [Suspect]
     Indication: DRUG ABUSER
     Dosage: 10 MG , PO
     Route: 048
     Dates: start: 20050202, end: 20050325
  2. METHADONE HCL [Suspect]
     Indication: PROPHYLAXIS
     Dosage: 10 MG , PO
     Route: 048
     Dates: start: 20050202, end: 20050325
  3. EXCEDRIN (PARA-SELTZER) [Concomitant]
  4. ANTIHYPERTENSIVE (OTHER ANTIHYPERTENSIVES) [Concomitant]

REACTIONS (4)
  - DISORIENTATION [None]
  - DRUG TOXICITY [None]
  - INTENTIONAL DRUG MISUSE [None]
  - OVERDOSE [None]
